APPROVED DRUG PRODUCT: VIRAMUNE
Active Ingredient: NEVIRAPINE
Strength: 200MG **Federal Register determination that product was not discontinued or withdrawn for safety or effectiveness reasons**
Dosage Form/Route: TABLET;ORAL
Application: N020636 | Product #001
Applicant: BOEHRINGER INGELHEIM PHARMACEUTICALS INC
Approved: Jun 21, 1996 | RLD: Yes | RS: No | Type: DISCN